FAERS Safety Report 9684258 (Version 2)
Quarter: 2013Q4

REPORT INFORMATION
  Report Type: Spontaneous
  Country: GR (occurrence: GR)
  Receive Date: 20131112
  Receipt Date: 20131119
  Transmission Date: 20140711
  Serious: Yes (Other)
  Sender: FDA-Public Use
  Company Number: GR-GLAXOSMITHKLINE-B0941506A

PATIENT
  Age: 1 Year
  Sex: Male

DRUGS (3)
  1. ZINACEF [Suspect]
     Indication: PREOPERATIVE CARE
     Dosage: 300MG THREE TIMES PER DAY
     Route: 042
     Dates: start: 20131030
  2. FLAGYL [Concomitant]
  3. BRIKLIN [Concomitant]

REACTIONS (1)
  - Cough [Recovered/Resolved]
